FAERS Safety Report 16983477 (Version 1)
Quarter: 2019Q4

REPORT INFORMATION
  Report Type: Spontaneous
  Country: DE (occurrence: DE)
  Receive Date: 20191101
  Receipt Date: 20191101
  Transmission Date: 20200122
  Serious: Yes (Other)
  Sender: FDA-Public Use
  Company Number: NVSC2019DE020924

PATIENT
  Age: 27 Year
  Sex: Female

DRUGS (2)
  1. PREDNISOLONE. [Suspect]
     Active Substance: PREDNISOLONE
     Indication: LABYRINTHITIS
     Dosage: UNK
     Route: 065
  2. AZATHIOPRINE. [Suspect]
     Active Substance: AZATHIOPRINE
     Indication: LABYRINTHITIS
     Dosage: UNK
     Route: 065

REACTIONS (7)
  - Cataract [Unknown]
  - Nausea [Unknown]
  - Headache [Unknown]
  - Hepatic enzyme increased [Unknown]
  - Cushingoid [Unknown]
  - Osteopenia [Unknown]
  - Product use in unapproved indication [Unknown]
